FAERS Safety Report 16554734 (Version 1)
Quarter: 2019Q3

REPORT INFORMATION
  Report Type: Report from Study
  Country: US (occurrence: US)
  Receive Date: 20190710
  Receipt Date: 20190710
  Transmission Date: 20191004
  Serious: Yes (Hospitalization)
  Sender: FDA-Public Use
  Company Number: US-ACTELION-A-US2018-166682

PATIENT
  Age: 40 Year
  Sex: Female
  Weight: 63.95 kg

DRUGS (7)
  1. VELETRI [Suspect]
     Active Substance: EPOPROSTENOL
     Indication: PULMONARY ARTERIAL HYPERTENSION
     Dosage: 34 NG/KG, PER MIN
     Route: 042
     Dates: end: 201906
  2. COUMADIN [Concomitant]
     Active Substance: WARFARIN SODIUM
  3. REVATIO [Concomitant]
     Active Substance: SILDENAFIL CITRATE
  4. VELETRI [Suspect]
     Active Substance: EPOPROSTENOL
     Dosage: 29.3 NG/KG, PER MIN
     Route: 042
  5. OPSUMIT [Suspect]
     Active Substance: MACITENTAN
     Indication: PULMONARY ARTERIAL HYPERTENSION
     Dosage: 10 MG, QD
     Route: 048
  6. VELETRI [Suspect]
     Active Substance: EPOPROSTENOL
     Dosage: 32 NG/KG, PER MIN
     Route: 042
  7. VELETRI [Suspect]
     Active Substance: EPOPROSTENOL
     Dosage: 33 NG/KG, PER MIN
     Route: 042

REACTIONS (6)
  - Palpitations [Unknown]
  - Chest pain [Unknown]
  - Therapy change [Unknown]
  - Dyspnoea exertional [Unknown]
  - Pruritus [Unknown]
  - Pain in jaw [Unknown]

NARRATIVE: CASE EVENT DATE: 20190624
